FAERS Safety Report 10003993 (Version 1)
Quarter: 2014Q1

REPORT INFORMATION
  Report Type: Spontaneous
  Country: DE (occurrence: DE)
  Receive Date: 20140312
  Receipt Date: 20140312
  Transmission Date: 20141002
  Serious: Yes (Hospitalization, Other)
  Sender: FDA-Public Use
  Company Number: DE-AMGEN-DEUCT2014016330

PATIENT
  Sex: Female
  Weight: 74 kg

DRUGS (9)
  1. XGEVA [Suspect]
     Indication: METASTASES TO BONE
     Dosage: 120 MG, Q4WK
     Route: 058
     Dates: start: 201208
  2. AFINITOR [Suspect]
     Indication: BREAST CANCER METASTATIC
     Dosage: 10 MG, QD
     Route: 048
     Dates: start: 20131002
  3. EXEMESTANE [Concomitant]
     Dosage: UNK
     Route: 065
     Dates: start: 20131002
  4. METFORMIN [Concomitant]
     Dosage: 900 MG, UNK
     Route: 065
     Dates: start: 2005
  5. MIRTAZAPIN [Concomitant]
     Dosage: 30 MG, UNK
     Route: 065
     Dates: start: 2010
  6. TRAMADOL [Concomitant]
     Route: 065
  7. RAMIPRIL [Concomitant]
     Dosage: 10 MG, UNK
     Route: 065
     Dates: start: 2005
  8. BISOPROLOL [Concomitant]
     Dosage: 10 MG, UNK
     Route: 065
     Dates: start: 2005
  9. PANTOZOL                           /01263204/ [Concomitant]
     Dosage: UNK
     Route: 065
     Dates: start: 2005

REACTIONS (2)
  - Metastases to bone [Unknown]
  - Osteonecrosis of jaw [Recovered/Resolved]
